FAERS Safety Report 5029093-8 (Version None)
Quarter: 2006Q2

REPORT INFORMATION
  Report Type: 
  Country: None (occurrence: None)
  Receive Date: 20060619
  Receipt Date: 20060607
  Transmission Date: 20061013
  Serious: Yes (Other)
  Sender: FDA-Public Use
  Company Number: PHEH2006US07483

PATIENT
  Sex: Female

DRUGS (2)
  1. MIGERGOT [Concomitant]
  2. CAFERGOT [Suspect]
     Indication: MIGRAINE
     Route: 054
     Dates: end: 20050901

REACTIONS (3)
  - BLOOD CHOLESTEROL INCREASED [None]
  - HEART RATE INCREASED [None]
  - POST THROMBOTIC SYNDROME [None]
